FAERS Safety Report 12429663 (Version 2)
Quarter: 2016Q2

REPORT INFORMATION
  Report Type: Spontaneous
  Country: FR (occurrence: FR)
  Receive Date: 20160602
  Receipt Date: 20160621
  Transmission Date: 20160815
  Serious: Yes (Other)
  Sender: FDA-Public Use
  Company Number: FR-ARIAD PHARMACEUTICALS, INC-2016FR006531

PATIENT
  Age: 45 Year
  Sex: Female

DRUGS (8)
  1. ICLUSIG [Suspect]
     Active Substance: PONATINIB
     Dosage: 30 MG, QD
     Route: 048
  2. METHOTREXATE [Suspect]
     Active Substance: METHOTREXATE
     Indication: ACUTE LYMPHOCYTIC LEUKAEMIA
     Dosage: UNK
  3. HYPER CVAD [Suspect]
     Active Substance: CYCLOPHOSPHAMIDE\CYTARABINE\DEXAMETHASONE\DOXORUBICIN\METHOTREXATE\VINCRISTINE
     Indication: ACUTE LYMPHOCYTIC LEUKAEMIA
  4. ONCOVIN [Suspect]
     Active Substance: VINCRISTINE SULFATE
     Indication: ACUTE LYMPHOCYTIC LEUKAEMIA
     Dosage: UNK
     Dates: start: 20150825
  5. DEXAMETHASONE. [Suspect]
     Active Substance: DEXAMETHASONE
     Indication: ACUTE LYMPHOCYTIC LEUKAEMIA
     Dosage: UNK
     Dates: start: 20150825
  6. ICLUSIG [Suspect]
     Active Substance: PONATINIB
     Indication: ACUTE LYMPHOCYTIC LEUKAEMIA
     Dosage: 45 MG, QD
     Route: 048
     Dates: start: 20150909
  7. CYTARABINE. [Suspect]
     Active Substance: CYTARABINE
     Indication: ACUTE LYMPHOCYTIC LEUKAEMIA
  8. DASATINIB MONOHYDRATE [Suspect]
     Active Substance: DASATINIB
     Indication: ACUTE LYMPHOCYTIC LEUKAEMIA
     Dosage: UNK
     Dates: start: 20150825

REACTIONS (2)
  - Graft versus host disease in skin [Not Recovered/Not Resolved]
  - Stem cell transplant [Unknown]
